FAERS Safety Report 7674125-1 (Version None)
Quarter: 2011Q3

REPORT INFORMATION
  Report Type: 
  Country: None (occurrence: None)
  Receive Date: 20110810
  Receipt Date: 20110803
  Transmission Date: 20111222
  Serious: Yes (Other)
  Sender: FDA-Public Use
  Company Number: JP-BAYER-2011-050717

PATIENT
  Age: 81 Year
  Sex: Male
  Weight: 79 kg

DRUGS (8)
  1. INTERFERON [Concomitant]
     Dosage: UNK
     Route: 042
     Dates: start: 20071201, end: 20110401
  2. INTERFERON ALFA [Concomitant]
     Dosage: DAILY DOSE 5 MIU
     Route: 058
     Dates: start: 20071201, end: 20110401
  3. NEXAVAR [Suspect]
     Indication: RENAL CELL CARCINOMA
     Dosage: 400 MG, QD
     Route: 048
     Dates: start: 20110524, end: 20110527
  4. DEPAS [Concomitant]
     Indication: INSOMNIA
     Dosage: 0.5 MG, QD
     Route: 048
  5. PURSENNID [Concomitant]
     Indication: CONSTIPATION
     Dosage: UNK
     Route: 048
  6. URINORM [Concomitant]
     Indication: HYPERURICAEMIA
     Dosage: 50 MG, QD
     Route: 048
  7. UNISIA (CANDESARTAN CILEXETIL AMLODIPINE BESILATE) [Concomitant]
     Indication: HYPERTENSION
     Dosage: UNK
     Route: 048
  8. DAIO-KANZO-TO [Concomitant]
     Indication: HYPERTENSION
     Dosage: UNK
     Route: 048

REACTIONS (1)
  - DELIRIUM [None]
